FAERS Safety Report 20533859 (Version 1)
Quarter: 2022Q1

REPORT INFORMATION
  Report Type: Spontaneous
  Country: IT (occurrence: IT)
  Receive Date: 20220301
  Receipt Date: 20220301
  Transmission Date: 20220424
  Serious: Yes (Hospitalization, Other)
  Sender: FDA-Public Use
  Company Number: None

PATIENT
  Age: 63 Year
  Sex: Male
  Weight: 92 kg

DRUGS (3)
  1. ADCETRIS [Suspect]
     Active Substance: BRENTUXIMAB VEDOTIN
     Indication: Cutaneous T-cell lymphoma
     Dosage: 133.1 MILLIGRAM
     Route: 042
     Dates: start: 20211125, end: 20211125
  2. LAMIVUDINE [Concomitant]
     Active Substance: LAMIVUDINE
     Dosage: 100 MILLIGRAM
     Route: 048
  3. ACYCLOVIR [Concomitant]
     Active Substance: ACYCLOVIR
     Dosage: 400 MILLIGRAM
     Route: 048

REACTIONS (3)
  - Facial paresis [Not Recovered/Not Resolved]
  - Ataxia [Not Recovered/Not Resolved]
  - Neuropathy peripheral [Not Recovered/Not Resolved]

NARRATIVE: CASE EVENT DATE: 20211216
